FAERS Safety Report 4305380-3 (Version None)
Quarter: 2004Q1

REPORT INFORMATION
  Report Type: 
  Country: None (occurrence: None)
  Receive Date: 20040226
  Receipt Date: 20030916
  Transmission Date: 20041129
  Serious: No
  Sender: FDA-Public Use
  Company Number: US-BRISTOL-MYERS SQUIBB COMPANY-12383576

PATIENT
  Age: 41 Year
  Sex: Male
  Weight: 169 kg

DRUGS (6)
  1. TAXOL [Suspect]
     Dosage: SUBSEQUENT TX ON 18AUG AND 08SEP  DOSING OVER 3 HOURS
     Route: 042
     Dates: start: 20030811, end: 20030811
  2. CARBOPLATIN [Suspect]
     Dosage: DOSE = AUC 6 OVER 30 MIN
     Dates: start: 20030811, end: 20030811
  3. DIPHENHYDRAMINE HCL [Concomitant]
     Dates: start: 20030811, end: 20030811
  4. RANITIDINE [Concomitant]
     Dates: start: 20030811, end: 20030811
  5. ONDANSETRON [Concomitant]
     Dates: start: 20030811, end: 20030811
  6. DEXAMETHASONE [Concomitant]
     Dates: start: 20030811, end: 20030811

REACTIONS (2)
  - CHEST DISCOMFORT [None]
  - WHEEZING [None]
